FAERS Safety Report 5401502-1 (Version None)
Quarter: 2007Q3

REPORT INFORMATION
  Report Type: 
  Country: None (occurrence: None)
  Receive Date: 20070731
  Receipt Date: 20070309
  Transmission Date: 20080115
  Serious: No
  Sender: FDA-Public Use
  Company Number: A0642958A

PATIENT
  Age: 82 Year
  Sex: Female

DRUGS (1)
  1. TRIAMTERENE AND HYDROCHLOROTHIAZIDE [Suspect]

REACTIONS (3)
  - ABDOMINAL PAIN UPPER [None]
  - ANOREXIA [None]
  - MUSCLE SPASMS [None]
